FAERS Safety Report 7153057-1 (Version None)
Quarter: 2010Q4

REPORT INFORMATION
  Report Type: 
  Country: None (occurrence: None)
  Receive Date: 20101130
  Receipt Date: 20101019
  Transmission Date: 20110411
  Serious: Yes (Life-Threatening)
  Sender: FDA-Public Use
  Company Number: 54973

PATIENT
  Age: 2 Month
  Sex: Female
  Weight: 4.0824 kg

DRUGS (1)
  1. HYLAND'S TEETHING TABLETS [Suspect]
     Indication: TEETHING
     Dosage: 2 TABS 3-4 HRS X 1 TIME

REACTIONS (5)
  - CHOKING [None]
  - COUGH [None]
  - INCREASED UPPER AIRWAY SECRETION [None]
  - RHINORRHOEA [None]
  - SKIN DISCOLOURATION [None]
